FAERS Safety Report 7513412-4 (Version None)
Quarter: 2011Q2

REPORT INFORMATION
  Report Type: 
  Country: None (occurrence: None)
  Receive Date: 20110531
  Receipt Date: 20110517
  Transmission Date: 20111010
  Serious: Yes (Other)
  Sender: FDA-Public Use
  Company Number: US-UCBSA-033180

PATIENT
  Age: 26 Year
  Sex: Male

DRUGS (1)
  1. PEG-3350 [Suspect]
     Route: 048

REACTIONS (1)
  - COLONIC PSEUDO-OBSTRUCTION [None]
